FAERS Safety Report 6614457-9 (Version None)
Quarter: 2010Q1

REPORT INFORMATION
  Report Type: 
  Country: None (occurrence: None)
  Receive Date: 20100304
  Receipt Date: 20100304
  Transmission Date: 20100710
  Serious: No
  Sender: FDA-Public Use
  Company Number: None

PATIENT
  Age: 88 Year
  Sex: Male
  Weight: 71.2 kg

DRUGS (1)
  1. WARFARIN SODIUM [Suspect]
     Dosage: 2.5 MG EVERY DAY PO
     Route: 048
     Dates: start: 20090910, end: 20100204

REACTIONS (1)
  - INTERNATIONAL NORMALISED RATIO ABNORMAL [None]
